FAERS Safety Report 6636963-3 (Version None)
Quarter: 2010Q1

REPORT INFORMATION
  Report Type: 
  Country: None (occurrence: None)
  Receive Date: 20100301
  Receipt Date: 20090930
  Transmission Date: 20100710
  Serious: Yes (Hospitalization, Other)
  Sender: FDA-Public Use
  Company Number: RB-21048-2009

PATIENT
  Age: 1 Day
  Sex: Male
  Weight: 4.1 kg

DRUGS (6)
  1. SUBOXONE [Suspect]
     Indication: DRUG DEPENDENCE
     Dosage: PATIENT'S MOTHER WAS TAKING BETWEEN 8-16 MG. DAILY TRANSPLACENTAL; SEE IMAGE
     Route: 064
     Dates: start: 20080930, end: 20081103
  2. SUBOXONE [Suspect]
     Indication: DRUG DEPENDENCE
     Dosage: PATIENT'S MOTHER WAS TAKING BETWEEN 8-16 MG. DAILY TRANSPLACENTAL; SEE IMAGE
     Route: 064
     Dates: start: 20090201, end: 20090710
  3. SUBUTEX [Suspect]
     Indication: DRUG DEPENDENCE
     Dosage: 8 MG QD TRANSPLACENTAL; SEE IMAGE
     Route: 064
     Dates: end: 20081104
  4. SUBUTEX [Suspect]
     Indication: DRUG DEPENDENCE
     Dosage: 8 MG QD TRANSPLACENTAL; SEE IMAGE
     Route: 064
     Dates: start: 20090201, end: 20090201
  5. METHADONE HCL [Suspect]
     Indication: DRUG DEPENDENCE
     Dosage: TRANSPLACENTAL
     Route: 064
     Dates: end: 20090201
  6. NORCO [Suspect]
     Indication: DRUG USE FOR UNKNOWN INDICATION
     Dosage: TRANSPLACENTAL
     Route: 064
     Dates: end: 20090201

REACTIONS (2)
  - DRUG EXPOSURE DURING PREGNANCY [None]
  - DRUG WITHDRAWAL SYNDROME NEONATAL [None]
